FAERS Safety Report 5329848-6 (Version None)
Quarter: 2007Q2

REPORT INFORMATION
  Report Type: 
  Country: None (occurrence: None)
  Receive Date: 20070517
  Receipt Date: 20070517
  Transmission Date: 20071010
  Serious: Yes (Other)
  Sender: FDA-Public Use
  Company Number: None

PATIENT
  Age: 7 Year
  Sex: Male
  Weight: 38.5557 kg

DRUGS (1)
  1. TAMIFLU [Suspect]
     Indication: INFLUENZA
     Dosage: 1 TSP. 2XS/DAY  1 DOSE GIVEN THEN STOPPED MED PER PEDITICIAN
     Dates: start: 20070328

REACTIONS (8)
  - ABNORMAL BEHAVIOUR [None]
  - ANXIETY [None]
  - CRYING [None]
  - DIZZINESS [None]
  - FEAR [None]
  - HALLUCINATION [None]
  - HALLUCINATION, AUDITORY [None]
  - NERVOUSNESS [None]
